FAERS Safety Report 9074983 (Version 1)
Quarter: 2013Q1

REPORT INFORMATION
  Report Type: Spontaneous
  Country: US (occurrence: US)
  Receive Date: 20130128
  Receipt Date: 20130128
  Transmission Date: 20140127
  Serious: No
  Sender: FDA-Public Use
  Company Number: US-GLAXOSMITHKLINE-A0983600A

PATIENT
  Age: 32 Year
  Sex: Female

DRUGS (5)
  1. MEPRON [Suspect]
     Indication: BABESIOSIS
     Dosage: 5ML TWICE PER DAY
     Route: 048
     Dates: start: 201204
  2. AZITHROMYCIN [Concomitant]
  3. MULTIVITAMIN [Concomitant]
  4. APIDRA [Concomitant]
  5. INSULIN [Concomitant]

REACTIONS (7)
  - Coeliac disease [Unknown]
  - Stomatitis [Unknown]
  - Gastrointestinal pain [Unknown]
  - Diarrhoea [Unknown]
  - Asthenia [Unknown]
  - Stomatitis [Unknown]
  - Oral discomfort [Unknown]
